FAERS Safety Report 7656012 (Version 2)
Quarter: 2012Q4

REPORT INFORMATION
  Report Type: 
  Country: US (occurrence: US)
  Receive Date: 20101104
  Receipt Date: 20121218
  Transmission Date: 20130627
  Serious: Yes (Hospitalization, Other)
  Sender: FDA-Public Use
  Company Number: US-BRISTOL-MYERS SQUIBB COMPANY-15363526

PATIENT
  Age: 8 Year
  Sex: Female
  Weight: 17.2 kg

DRUGS (5)
  1. ABILIFY [Suspect]
  2. RITALIN [Suspect]
  3. SEROQUEL [Concomitant]
  4. CONCERTA [Concomitant]
  5. CLONIDINE [Concomitant]

REACTIONS (3)
  - Coma [Unknown]
  - Dystonia [Unknown]
  - Accidental exposure to product by child [Unknown]
